FAERS Safety Report 8820174 (Version 2)
Quarter: 2012Q4

REPORT INFORMATION
  Report Type: 
  Country: FI (occurrence: FI)
  Receive Date: 20121002
  Receipt Date: 20121120
  Transmission Date: 20130627
  Serious: Yes (Hospitalization)
  Sender: FDA-Public Use
  Company Number: FI-AMGEN-FINSP2012061634

PATIENT
  Age: 31 Year
  Sex: Female
  Weight: 100 kg

DRUGS (2)
  1. ENBREL [Suspect]
     Indication: PSORIATIC ARTHROPATHY
     Dosage: 50 mg, weekly
     Route: 058
     Dates: start: 20120323, end: 20120820
  2. TREXAN                             /00113801/ [Concomitant]
     Dosage: 10 mg, UNK

REACTIONS (1)
  - Crohn^s disease [Not Recovered/Not Resolved]
